FAERS Safety Report 6722853-4 (Version None)
Quarter: 2010Q2

REPORT INFORMATION
  Report Type: 
  Country: None (occurrence: None)
  Receive Date: 20100512
  Receipt Date: 20100512
  Transmission Date: 20101027
  Serious: Yes (Life-Threatening)
  Sender: FDA-Public Use
  Company Number: None

PATIENT
  Age: 48 Year
  Sex: Female
  Weight: 54.4316 kg

DRUGS (1)
  1. PARAFON FORTE [Suspect]
     Indication: MUSCULOSKELETAL PAIN
     Dosage: ONE DOSE
     Dates: start: 19900601, end: 19900601

REACTIONS (1)
  - ANAPHYLACTIC SHOCK [None]
